FAERS Safety Report 16249900 (Version 1)
Quarter: 2019Q2

REPORT INFORMATION
  Report Type: Spontaneous
  Country: US (occurrence: US)
  Receive Date: 20190428
  Receipt Date: 20190428
  Transmission Date: 20190711
  Serious: No
  Sender: FDA-Public Use
  Company Number: None

PATIENT
  Age: 33 Year
  Sex: Female
  Weight: 45.36 kg

DRUGS (5)
  1. HEMP OIL SUPPLEMENT [Concomitant]
  2. VITAMIN D [Concomitant]
     Active Substance: VITAMIN D NOS
  3. FINACEA [Concomitant]
     Active Substance: AZELAIC ACID
  4. TURMERIC [Concomitant]
     Active Substance: HERBALS\TURMERIC
  5. MIRENA [Suspect]
     Active Substance: LEVONORGESTREL

REACTIONS (3)
  - Alopecia [None]
  - Acne cystic [None]
  - Skin exfoliation [None]

NARRATIVE: CASE EVENT DATE: 20120601
